FAERS Safety Report 7214284-8 (Version None)
Quarter: 2011Q1

REPORT INFORMATION
  Report Type: 
  Country: None (occurrence: None)
  Receive Date: 20110107
  Receipt Date: 20101230
  Transmission Date: 20110831
  Serious: Yes (Hospitalization)
  Sender: FDA-Public Use
  Company Number: KR-ABBOTT-11P-090-0694919-00

PATIENT
  Sex: Male

DRUGS (4)
  1. KALETRA [Suspect]
     Indication: HIV INFECTION
     Dates: start: 20100427
  2. 5K INFLUENZA VACCINE [Concomitant]
     Indication: INFLUENZA IMMUNISATION
     Dosage: 1 VIAL DAILY
     Route: 030
     Dates: start: 20101014, end: 20101014
  3. 3TC/AZT [Concomitant]
     Indication: ANTIRETROVIRAL THERAPY
     Dosage: 900 MG DAILY
     Dates: start: 20100427
  4. COMBIVIR [Concomitant]
     Indication: HIV INFECTION
     Dosage: 900 MG DAILY
     Route: 048
     Dates: start: 20100415

REACTIONS (3)
  - HERPES ZOSTER [None]
  - COUGH [None]
  - PRURITUS [None]
